FAERS Safety Report 7937440-X (Version None)
Quarter: 2011Q4

REPORT INFORMATION
  Report Type: 
  Country: None (occurrence: None)
  Receive Date: 20111123
  Receipt Date: 20111117
  Transmission Date: 20120403
  Serious: Yes (Other)
  Sender: FDA-Public Use
  Company Number: GB-JNJFOC-20111107680

PATIENT
  Age: 46 Year
  Sex: Male

DRUGS (3)
  1. METHOTREXATE [Concomitant]
  2. INFLIXIMAB, RECOMBINANT [Suspect]
     Indication: RHEUMATOID ARTHRITIS
     Route: 042
     Dates: start: 20030122, end: 20100624
  3. CORTICOSTEROIDS [Concomitant]

REACTIONS (1)
  - LUPUS-LIKE SYNDROME [None]
